FAERS Safety Report 6339327-5 (Version None)
Quarter: 2009Q3

REPORT INFORMATION
  Report Type: 
  Country: None (occurrence: None)
  Receive Date: 20090903
  Receipt Date: 20090825
  Transmission Date: 20100115
  Serious: Yes (Other)
  Sender: FDA-Public Use
  Company Number: B0584236A

PATIENT
  Sex: Male

DRUGS (3)
  1. KIVEXA [Suspect]
     Dates: start: 20051001, end: 20080101
  2. REYATAZ [Suspect]
     Dates: start: 20051001
  3. TRUVADA [Suspect]
     Dates: start: 20080101

REACTIONS (3)
  - CHOLELITHIASIS [None]
  - GASTROINTESTINAL PAIN [None]
  - JAUNDICE [None]
